FAERS Safety Report 13243417 (Version 1)
Quarter: 2017Q1

REPORT INFORMATION
  Report Type: Spontaneous
  Country: US (occurrence: US)
  Receive Date: 20170216
  Receipt Date: 20170216
  Transmission Date: 20170428
  Serious: Yes (Other)
  Sender: FDA-Public Use
  Company Number: US-MALLINCKRODT-T201600300

PATIENT
  Age: 21 Year
  Weight: 60 kg

DRUGS (8)
  1. INOMAX [Suspect]
     Active Substance: NITRIC OXIDE
     Dosage: 0.4 PPM, CONTINUOUS
     Dates: start: 20160122, end: 20160122
  2. FENTANYL. [Concomitant]
     Active Substance: FENTANYL
  3. HEPARIN [Concomitant]
     Active Substance: HEPARIN SODIUM
  4. INOMAX [Suspect]
     Active Substance: NITRIC OXIDE
     Indication: PULMONARY VASCULAR DISORDER
     Dosage: 20 PPM, CONTINUOUS
     Dates: start: 20160122, end: 20160122
  5. INOMAX [Suspect]
     Active Substance: NITRIC OXIDE
     Dosage: 8PPM, CONTINUOUS
     Dates: start: 20160122, end: 20160122
  6. MIDAZOLAM [Concomitant]
     Active Substance: MIDAZOLAM HYDROCHLORIDE
  7. INOMAX [Suspect]
     Active Substance: NITRIC OXIDE
     Dosage: 9 PPM, CONTINUOUS
     Dates: start: 20160122, end: 20160122
  8. CISATRACURIUM. [Concomitant]
     Active Substance: CISATRACURIUM

REACTIONS (4)
  - Heart rate decreased [Recovered/Resolved]
  - Device issue [Not Recovered/Not Resolved]
  - Off label use [Unknown]
  - Oxygen saturation decreased [Recovered/Resolved]

NARRATIVE: CASE EVENT DATE: 20160122
